FAERS Safety Report 20471658 (Version 2)
Quarter: 2025Q2

REPORT INFORMATION
  Report Type: Spontaneous
  Country: PL (occurrence: PL)
  Receive Date: 20220214
  Receipt Date: 20250620
  Transmission Date: 20250716
  Serious: Yes (Other)
  Sender: SANOFI AVENTIS
  Company Number: PL-ASTPRD-AER-2022-000432

PATIENT
  Age: 62 Year
  Sex: Male

DRUGS (7)
  1. TAMSULOSIN HYDROCHLORIDE [Suspect]
     Active Substance: TAMSULOSIN HYDROCHLORIDE
     Indication: Benign prostatic hyperplasia
     Dosage: 0.4 MG, QD (ONE IN EVENING)
     Route: 048
     Dates: start: 20220202
  2. TAMSULOSIN HYDROCHLORIDE [Suspect]
     Active Substance: TAMSULOSIN HYDROCHLORIDE
     Indication: Bladder disorder
  3. SULFASALAZINE [Concomitant]
     Active Substance: SULFASALAZINE
     Indication: Enteritis
     Route: 065
  4. AMPICILLIN [Concomitant]
     Active Substance: AMPICILLIN
     Indication: Lower respiratory tract inflammation
     Route: 065
     Dates: start: 202201
  5. MEBEVERINE HYDROCHLORIDE [Concomitant]
     Active Substance: MEBEVERINE HYDROCHLORIDE
     Indication: Enteritis
     Route: 065
  6. ASCORBIC ACID\RUTIN [Concomitant]
     Active Substance: ASCORBIC ACID\RUTIN
     Indication: Prophylaxis
     Route: 065
  7. FURAGIN [FURAZIDIN] [Concomitant]
     Indication: Bladder disorder
     Route: 048
     Dates: start: 20220202

REACTIONS (4)
  - Retrograde ejaculation [Recovered/Resolved]
  - Spontaneous penile erection [Recovered/Resolved]
  - Nasal dryness [Recovering/Resolving]
  - Off label use [Unknown]

NARRATIVE: CASE EVENT DATE: 20220202
